FAERS Safety Report 19884042 (Version 1)
Quarter: 2021Q3

REPORT INFORMATION
  Report Type: Spontaneous
  Country: US (occurrence: US)
  Receive Date: 20210927
  Receipt Date: 20210927
  Transmission Date: 20211014
  Serious: Yes (Other)
  Sender: FDA-Public Use
  Company Number: US-AMGEN-USASP2021142984

PATIENT
  Age: 45 Year
  Sex: Male

DRUGS (3)
  1. RITUXIMAB. [Suspect]
     Active Substance: RITUXIMAB
     Indication: PRODUCT USED FOR UNKNOWN INDICATION
     Dosage: UNK
     Route: 065
  2. METHYLPREDNISOLONE. [Concomitant]
     Active Substance: METHYLPREDNISOLONE
     Indication: RESPIRATORY FAILURE
     Dosage: 1 GRAM, QD (FOR 5 DAYS)
     Route: 042
  3. BOTULISM ANTITOXIN NOS [Concomitant]
     Active Substance: BOTULISM ANTITOXIN
     Indication: TRISMUS
     Dosage: UNK

REACTIONS (3)
  - Respiratory failure [Unknown]
  - Off label use [Unknown]
  - Central-alveolar hypoventilation [Unknown]
